FAERS Safety Report 9270278 (Version 1)
Quarter: 2013Q2

REPORT INFORMATION
  Report Type: Spontaneous
  Country: CN (occurrence: CN)
  Receive Date: 20130503
  Receipt Date: 20130503
  Transmission Date: 20140414
  Serious: Yes (Other)
  Sender: FDA-Public Use
  Company Number: CN-JNJFOC-20130413395

PATIENT
  Sex: Female

DRUGS (6)
  1. ITRACONAZOLE [Suspect]
     Indication: FUSARIUM INFECTION
     Route: 065
  2. FLUCONAZOL [Suspect]
     Indication: FUSARIUM INFECTION
     Route: 065
  3. TERBINAFINE [Suspect]
     Indication: FUSARIUM INFECTION
     Route: 065
  4. AMPHOTERICIN B [Suspect]
     Indication: FUSARIUM INFECTION
     Route: 065
  5. VORICONAZOLE [Suspect]
     Indication: FUSARIUM INFECTION
     Route: 065
  6. THYMOPENTIN [Suspect]
     Indication: FUSARIUM INFECTION
     Route: 030

REACTIONS (3)
  - Fusarium infection [Unknown]
  - Gene mutation [Unknown]
  - Drug resistance [Unknown]
